FAERS Safety Report 8346326-0 (Version None)
Quarter: 2012Q2

REPORT INFORMATION
  Report Type: 
  Country: None (occurrence: None)
  Receive Date: 20120509
  Receipt Date: 20120504
  Transmission Date: 20120825
  Serious: Yes (Other)
  Sender: FDA-Public Use
  Company Number: BR-PFIZER INC-2009217952

PATIENT
  Age: 41 Year
  Sex: Male

DRUGS (5)
  1. CLONAZEPAM [Concomitant]
     Indication: INSOMNIA
     Dosage: UNK
     Route: 048
  2. VARENICLINE TARTRATE [Suspect]
     Indication: SMOKING CESSATION THERAPY
     Dosage: 0.5 MG, 1X/DAY
     Route: 048
     Dates: start: 20090525
  3. VARENICLINE TARTRATE [Suspect]
     Dosage: 1 MG, 2X/DAY (EVERY 12 HOURS)
     Route: 048
     Dates: start: 20120101
  4. VARENICLINE TARTRATE [Suspect]
     Dosage: 0.5 MG (A HALF OF TABLET OF 1MG), DAILY
     Route: 048
     Dates: start: 20120421, end: 20120101
  5. VARENICLINE TARTRATE [Suspect]
     Dosage: 1 MG, 1X/DAY
     Route: 048
     Dates: start: 20120101, end: 20120101

REACTIONS (15)
  - DENGUE FEVER [None]
  - INSOMNIA [None]
  - NASOPHARYNGITIS [None]
  - MYALGIA [None]
  - GASTRITIS [None]
  - DEPRESSION [None]
  - PYREXIA [None]
  - DYSGEUSIA [None]
  - LETHARGY [None]
  - FEELING OF RELAXATION [None]
  - HEADACHE [None]
  - IRRITABILITY [None]
  - SOMNOLENCE [None]
  - EYE PAIN [None]
  - RASH MACULAR [None]
